FAERS Safety Report 8257479-7 (Version None)
Quarter: 2012Q2

REPORT INFORMATION
  Report Type: 
  Country: None (occurrence: None)
  Receive Date: 20120403
  Receipt Date: 20120328
  Transmission Date: 20120825
  Serious: Yes (Hospitalization)
  Sender: FDA-Public Use
  Company Number: PHHO2012DE005112

PATIENT
  Age: 66 Year
  Sex: Female
  Weight: 90 kg

DRUGS (3)
  1. FLUOROURACIL [Suspect]
     Indication: BREAST CANCER
     Dosage: 965 MG, UNK
     Route: 042
     Dates: start: 20070208, end: 20070320
  2. HERCEPTIN [Suspect]
     Indication: BREAST CANCER
     Dosage: 588 MG, UNK
     Route: 042
     Dates: start: 20071213, end: 20081229
  3. ZOLEDRONOC ACID [Suspect]
     Indication: BREAST CANCER
     Dosage: 4 MG, UNK
     Route: 042
     Dates: start: 20070616, end: 20110920

REACTIONS (1)
  - CONGESTIVE CARDIOMYOPATHY [None]
